FAERS Safety Report 23276160 (Version 1)
Quarter: 2023Q4

REPORT INFORMATION
  Report Type: Spontaneous
  Country: US (occurrence: US)
  Receive Date: 20231208
  Receipt Date: 20231208
  Transmission Date: 20240110
  Serious: No
  Sender: FDA-Public Use
  Company Number: US-GSK-US2023GSK169899

PATIENT

DRUGS (2)
  1. WELLBUTRIN XL [Suspect]
     Active Substance: BUPROPION HYDROCHLORIDE
     Indication: Product used for unknown indication
     Dosage: UNK
  2. APLENZIN [Suspect]
     Active Substance: BUPROPION HYDROBROMIDE
     Indication: Product used for unknown indication
     Dosage: UNK

REACTIONS (1)
  - Drug hypersensitivity [Unknown]
